FAERS Safety Report 24366425 (Version 1)
Quarter: 2024Q3

REPORT INFORMATION
  Report Type: Spontaneous
  Country: US (occurrence: US)
  Receive Date: 20240926
  Receipt Date: 20240926
  Transmission Date: 20241017
  Serious: No
  Sender: PFIZER
  Company Number: US-PFIZER INC-202400258415

PATIENT
  Age: 14 Year
  Sex: Male
  Weight: 56.7 kg

DRUGS (2)
  1. GENOTROPIN [Suspect]
     Active Substance: SOMATROPIN
     Indication: Short stature
     Dosage: 2.6 MG (OR 2.8MG), 1X/DAY (7 DAYS A WEEK)
  2. ANASTROZOLE [Concomitant]
     Active Substance: ANASTROZOLE
     Dosage: 1 MG, DAILY

REACTIONS (3)
  - Device leakage [Unknown]
  - Product knowledge deficit [Unknown]
  - Device difficult to use [Unknown]
